FAERS Safety Report 15001616 (Version 1)
Quarter: 2018Q2

REPORT INFORMATION
  Report Type: Spontaneous
  Country: US (occurrence: US)
  Receive Date: 20180612
  Receipt Date: 20180612
  Transmission Date: 20180711
  Serious: No
  Sender: FDA-Public Use
  Company Number: US-CELGENEUS-USA-20180602731

PATIENT
  Age: 45 Year
  Sex: Female

DRUGS (7)
  1. OTEZLA [Suspect]
     Active Substance: APREMILAST
     Indication: PSORIASIS
     Dosage: STARTER PACK
     Route: 048
     Dates: start: 20180515
  2. DOXYCYCLINE. [Concomitant]
     Active Substance: DOXYCYCLINE
     Indication: INFERTILITY
     Route: 048
  3. MENOPUR [Concomitant]
     Active Substance: FOLLITROPIN\LUTEINIZING HORMONE
     Indication: INFERTILITY
     Route: 065
  4. ESTRACE [Concomitant]
     Active Substance: ESTRADIOL
     Indication: INFERTILITY
     Route: 048
  5. PROGESTERONE. [Concomitant]
     Active Substance: PROGESTERONE
     Indication: INFERTILITY
     Dosage: 50MG/ML
     Route: 065
  6. LEUPROLIDE [Concomitant]
     Active Substance: LEUPROLIDE
     Indication: INFERTILITY
     Dosage: 1MG/0.2ML
     Route: 065
  7. CHOR GONADOT [Concomitant]
     Indication: PRODUCT USED FOR UNKNOWN INDICATION
     Route: 065

REACTIONS (2)
  - Psoriasis [Unknown]
  - Sinusitis [Unknown]

NARRATIVE: CASE EVENT DATE: 20180606
